FAERS Safety Report 23182046 (Version 1)
Quarter: 2023Q4

REPORT INFORMATION
  Report Type: Report from Study
  Country: CA (occurrence: None)
  Receive Date: 20231114
  Receipt Date: 20231114
  Transmission Date: 20240110
  Serious: Yes (Hospitalization)
  Sender: FDA-Public Use
  Company Number: 2023A246050

PATIENT
  Age: 29677 Day
  Sex: Female

DRUGS (4)
  1. TEZSPIRE [Suspect]
     Active Substance: TEZEPELUMAB-EKKO
     Indication: Asthma
     Route: 058
     Dates: start: 20230112
  2. VENTOLIN [Concomitant]
     Active Substance: ALBUTEROL SULFATE
  3. ALVESCO [Concomitant]
     Active Substance: CICLESONIDE
  4. ZENHALE [Concomitant]
     Active Substance: FORMOTEROL FUMARATE\MOMETASONE FUROATE

REACTIONS (11)
  - Cardiac failure congestive [Unknown]
  - Nephrotic syndrome [Unknown]
  - Rash [Unknown]
  - Eczema [Unknown]
  - Blister [Unknown]
  - Gout [Unknown]
  - Peripheral swelling [Unknown]
  - Joint swelling [Unknown]
  - Oedema [Unknown]
  - Fluid retention [Unknown]
  - Burning sensation [Unknown]
